FAERS Safety Report 19304673 (Version 1)
Quarter: 2021Q2

REPORT INFORMATION
  Report Type: Spontaneous
  Country: ES (occurrence: ES)
  Receive Date: 20210525
  Receipt Date: 20210525
  Transmission Date: 20210717
  Serious: Yes (Hospitalization)
  Sender: FDA-Public Use
  Company Number: ES-TAKEDA-2021TUS031272

PATIENT
  Age: 54 Year
  Sex: Male

DRUGS (4)
  1. PROPRANOLOL [Concomitant]
     Active Substance: PROPRANOLOL HYDROCHLORIDE
     Indication: HEPATIC CIRRHOSIS
     Route: 048
     Dates: start: 202011
  2. FUROSEMIDA [FUROSEMIDE] [Concomitant]
     Active Substance: FUROSEMIDE
     Indication: HEPATIC CIRRHOSIS
     Route: 048
     Dates: start: 202009
  3. ESPIRONOLACTONA [Concomitant]
     Active Substance: SPIRONOLACTONE
     Indication: HEPATIC CIRRHOSIS
     Route: 048
     Dates: start: 202011
  4. ALBUMINA HUMANA [Suspect]
     Active Substance: ALBUMIN HUMAN
     Indication: ASCITES
     Route: 042
     Dates: start: 20210407, end: 20210407

REACTIONS (1)
  - Urticaria [Recovered/Resolved]

NARRATIVE: CASE EVENT DATE: 20210407
